FAERS Safety Report 5243063-6 (Version None)
Quarter: 2007Q1

REPORT INFORMATION
  Report Type: 
  Country: None (occurrence: None)
  Receive Date: 20070220
  Receipt Date: 20070220
  Transmission Date: 20070707
  Serious: Yes (Other)
  Sender: FDA-Public Use
  Company Number: None

PATIENT
  Age: 28 Year
  Sex: Female
  Weight: 79.3795 kg

DRUGS (9)
  1. THALOMID [Suspect]
     Indication: ENDOMETRIOSIS
     Dosage: 150MG P.O. QD
     Route: 048
     Dates: start: 20061207, end: 20070213
  2. LISINOPRIL [Concomitant]
  3. LESSINA [Concomitant]
  4. TRAZODONE HCL [Concomitant]
  5. PEPTO BISMOL [Concomitant]
  6. ALBUTEROL [Concomitant]
  7. TYLENOL [Concomitant]
  8. ERRIN [Concomitant]
  9. ADVAIR DISKUS 100/50 [Concomitant]

REACTIONS (4)
  - CHOLECYSTITIS [None]
  - MEDICATION ERROR [None]
  - NAUSEA [None]
  - VOMITING [None]
